FAERS Safety Report 17069909 (Version 1)
Quarter: 2019Q4

REPORT INFORMATION
  Report Type: Spontaneous
  Country: US (occurrence: US)
  Receive Date: 20191025
  Receipt Date: 20191025
  Transmission Date: 20200122
  Serious: No
  Sender: FDA-Public Use
  Company Number: None

PATIENT
  Age: 69 Year
  Sex: Male

DRUGS (1)
  1. ADEFOV DIPIV 10MG TAB (X30) [Suspect]
     Active Substance: ADEFOVIR DIPIVOXIL
     Indication: HEPATITIS C
     Route: 048
     Dates: start: 201905, end: 201906

REACTIONS (1)
  - Product prescribing error [None]

NARRATIVE: CASE EVENT DATE: 20190501
